FAERS Safety Report 7937415-0 (Version None)
Quarter: 2011Q4

REPORT INFORMATION
  Report Type: 
  Country: None (occurrence: None)
  Receive Date: 20111123
  Receipt Date: 20111114
  Transmission Date: 20120403
  Serious: Yes (Other)
  Sender: FDA-Public Use
  Company Number: CA-JNJFOC-20111106286

PATIENT
  Sex: Male
  Weight: 87 kg

DRUGS (6)
  1. METHOTREXATE [Concomitant]
     Route: 065
  2. LOPERAMIDE HCL [Concomitant]
     Route: 065
  3. PANADEINE CO [Concomitant]
     Route: 065
  4. REMICADE [Suspect]
     Route: 042
     Dates: start: 20110927
  5. REMICADE [Suspect]
     Indication: CROHN'S DISEASE
     Route: 042
     Dates: start: 20091216
  6. ENTOCORT EC [Concomitant]
     Route: 065

REACTIONS (3)
  - MYALGIA [None]
  - MUSCULOSKELETAL STIFFNESS [None]
  - ARTHRALGIA [None]
